FAERS Safety Report 14707280 (Version 1)
Quarter: 2020Q3

REPORT INFORMATION
  Report Type: Spontaneous
  Country: GR (occurrence: GR)
  Receive Date: 20180403
  Receipt Date: 20180403
  Transmission Date: 20201104
  Serious: Yes (Death)
  Sender: FDA-Public Use
  Company Number: GR-AXELLIA-001516

PATIENT
  Age: 39 Year
  Sex: Female

DRUGS (5)
  1. CALCIUM GLUCONATE. [Suspect]
     Active Substance: CALCIUM GLUCONATE
     Indication: STREPTOCOCCAL BACTERAEMIA
  2. VANCOMYCIN [Suspect]
     Active Substance: VANCOMYCIN
     Indication: STREPTOCOCCAL BACTERAEMIA
     Route: 042
  3. SODIUM BICARBONATE. [Suspect]
     Active Substance: SODIUM BICARBONATE
     Indication: STREPTOCOCCAL BACTERAEMIA
     Route: 042
  4. PIPERACILLIN/TAZOBACTAM [Suspect]
     Active Substance: PIPERACILLIN SODIUM\TAZOBACTAM SODIUM
     Indication: STREPTOCOCCAL BACTERAEMIA
     Route: 042
  5. AMIKACIN. [Suspect]
     Active Substance: AMIKACIN
     Indication: STREPTOCOCCAL BACTERAEMIA
     Route: 042

REACTIONS (2)
  - Cardiac arrest [Fatal]
  - Pulseless electrical activity [Fatal]
